FAERS Safety Report 8620499-4 (Version None)
Quarter: 2012Q3

REPORT INFORMATION
  Report Type: 
  Country: None (occurrence: None)
  Receive Date: 20120824
  Receipt Date: 20120813
  Transmission Date: 20120928
  Serious: Yes (Other)
  Sender: FDA-Public Use
  Company Number: US-BRISTOL-MYERS SQUIBB COMPANY-16830531

PATIENT
  Age: 59 Year
  Sex: Female

DRUGS (17)
  1. ASPIRIN [Concomitant]
     Route: 048
  2. ABATACEPT SUBQ INJECTION 125MG/ML [Suspect]
     Indication: RHEUMATOID ARTHRITIS
     Dosage: LAST INJ:23-JUL-2012 INJ:5
     Route: 058
     Dates: start: 20120501
  3. TIZANIDINE HCL [Concomitant]
     Indication: SLEEP DISORDER
     Dosage: AT BEDTIME
     Route: 048
  4. TIZANIDINE HCL [Concomitant]
     Indication: MYALGIA
     Dosage: AT BEDTIME
     Route: 048
  5. ALENDRONATE SODIUM [Concomitant]
     Route: 048
  6. CALCIUM + VITAMIN D [Concomitant]
     Dosage: CALCIUM 600 TABS
  7. LISINOPRIL [Concomitant]
     Route: 048
  8. SIMVASTATIN [Concomitant]
     Route: 048
  9. VOLTAREN [Concomitant]
     Dosage: 1% GEL
     Route: 062
  10. LORAZEPAM [Concomitant]
     Dosage: AT BEDTIME
     Route: 048
  11. PERCOCET TABS 5 MG/325 MG [Concomitant]
     Route: 048
  12. CITALOPRAM HYDROBROMIDE [Concomitant]
     Route: 048
  13. PREDNISONE TAB [Concomitant]
     Dosage: 1 - 2 TABS TWICE DAILY INCREASED TO 15MG DAILY
     Route: 048
  14. LIDODERM [Concomitant]
     Dosage: 1 DF= 1 PATCH FOR EVERY 12 HRS AND OFF FOR 12 HRS
  15. VITAMIN D [Concomitant]
     Dosage: 1 DF= 5000 UNITS, CAPS
  16. IBUPROFEN [Concomitant]
     Route: 048
  17. SULFASALAZINE [Concomitant]
     Route: 048

REACTIONS (4)
  - INTERVERTEBRAL DISC PROTRUSION [None]
  - FALL [None]
  - INFLAMMATION [None]
  - LIGAMENT SPRAIN [None]
